FAERS Safety Report 20439320 (Version 1)
Quarter: 2022Q1

REPORT INFORMATION
  Report Type: Spontaneous
  Country: CN (occurrence: CN)
  Receive Date: 20220207
  Receipt Date: 20220207
  Transmission Date: 20220424
  Serious: Yes (Life-Threatening, Other)
  Sender: FDA-Public Use
  Company Number: CN-VIRTUS PHARMACEUTICALS, LLC-2022VTS00005

PATIENT
  Age: 62 Year
  Sex: Male
  Weight: 90 kg

DRUGS (7)
  1. TRANEXAMIC ACID [Suspect]
     Active Substance: TRANEXAMIC ACID
     Indication: Knee arthroplasty
     Dosage: 1.6 G
     Route: 042
  2. TRANEXAMIC ACID [Suspect]
     Active Substance: TRANEXAMIC ACID
     Indication: Haemorrhage
  3. ETOMIDATE [Concomitant]
     Active Substance: ETOMIDATE
     Indication: General anaesthesia
     Dosage: 18 MG
     Route: 042
  4. FENTANYL [Concomitant]
     Active Substance: FENTANYL
     Indication: General anaesthesia
     Dosage: 0.3 MG
     Route: 042
  5. ROCURONIUM [Concomitant]
     Active Substance: ROCURONIUM BROMIDE
     Indication: General anaesthesia
     Dosage: 50 MG
     Route: 042
  6. PROPOFOL [Concomitant]
     Active Substance: PROPOFOL
     Indication: Maintenance of anaesthesia
     Dosage: 6 MG/KG/H
     Route: 042
  7. REMIFENTANIL [Concomitant]
     Active Substance: REMIFENTANIL
     Indication: Maintenance of anaesthesia
     Dosage: 0.2 ?G/KG/MIN
     Route: 042

REACTIONS (2)
  - Circulatory collapse [Recovered/Resolved]
  - Intrapericardial thrombosis [Recovered/Resolved]
